FAERS Safety Report 8784955 (Version 2)
Quarter: 2013Q3

REPORT INFORMATION
  Report Type: Spontaneous
  Country: IT (occurrence: IT)
  Receive Date: 20120911
  Receipt Date: 20130826
  Transmission Date: 20140515
  Serious: Yes (Hospitalization)
  Sender: FDA-Public Use
  Company Number: IT-ELI_LILLY_AND_COMPANY-IT201209001848

PATIENT
  Sex: 0

DRUGS (5)
  1. GEMCITABINE HYDROCHLORIDE [Suspect]
     Indication: ADENOCARCINOMA PANCREAS
     Dosage: UNK MG/M2, UNK
  2. CISPLATIN [Concomitant]
     Indication: ADENOCARCINOMA PANCREAS
  3. EPIRUBICIN [Concomitant]
     Indication: ADENOCARCINOMA PANCREAS
  4. 5-FU [Concomitant]
     Indication: ADENOCARCINOMA PANCREAS
  5. THERAPEUTIC RADIOPHARMACEUTICALS [Concomitant]

REACTIONS (1)
  - Deep vein thrombosis [Unknown]
